FAERS Safety Report 16425357 (Version 1)
Quarter: 2019Q2

REPORT INFORMATION
  Report Type: Spontaneous
  Country: GB (occurrence: GB)
  Receive Date: 20190613
  Receipt Date: 20190613
  Transmission Date: 20190711
  Serious: Yes (Other)
  Sender: FDA-Public Use
  Company Number: GB-TEVA-2019-GB-1061657

PATIENT
  Age: 71 Year
  Sex: Female
  Weight: 88 kg

DRUGS (13)
  1. LOSARTAN. [Concomitant]
     Active Substance: LOSARTAN
     Dosage: 75 MILLIGRAM FOR EVERY 1 DAYS IN THE MORNING
     Dates: start: 20170816
  2. AMITRIPTYLINE [Concomitant]
     Active Substance: AMITRIPTYLINE
     Dosage: 1 DOSAGE FORM FOR EVERY 1 DAY AT NIGHT
     Dates: start: 20170612
  3. TRAMADOL. [Concomitant]
     Active Substance: TRAMADOL
     Dosage: 50 MILLIGRAM ?1-2 FOUR TIMES A DAY
     Dates: start: 20170516
  4. AMOXICILLIN. [Concomitant]
     Active Substance: AMOXICILLIN
     Dosage: 1500 MILLIGRAM FOR EVERY1 DAYS FOR 7 DAYS
     Dates: start: 20170919
  5. FOSTAIR [Concomitant]
     Active Substance: BECLOMETHASONE\FORMOTEROL
     Dosage: 100MICROGRAMS/DOSE / 6MICROGRAMS
     Dates: start: 20170612
  6. LEVOTHYROXINE. [Concomitant]
     Active Substance: LEVOTHYROXINE
     Dosage: 50 MICROGRAM FOR EVERY 1 DAYS
     Dates: start: 20170516
  7. AMITRIPTYLINE [Concomitant]
     Active Substance: AMITRIPTYLINE
     Dosage: 25 MILLIGRAM FOR EVERY 1 DAYS AT NIGHT
     Dates: start: 20170516
  8. SPIRIVA [Concomitant]
     Active Substance: TIOTROPIUM BROMIDE MONOHYDRATE
     Dosage: 2 DOSAGE FORM FOR EVERY 1 DAYS
     Dates: start: 20170904
  9. RAMIPRIL. [Suspect]
     Active Substance: RAMIPRIL
     Dosage: 5MG, 2.5MG, 1.25MG
     Route: 065
  10. SECURON [Concomitant]
     Active Substance: VERAPAMIL HYDROCHLORIDE
     Dosage: 0.5DOSAGE FORM FOR EVERY 1 DAY
     Dates: start: 20170801
  11. HYLO-FORTE [Concomitant]
     Active Substance: HYALURONATE SODIUM
     Dosage: AS DIRECTED
     Dates: start: 20170904
  12. NITROFURANTOIN. [Concomitant]
     Active Substance: NITROFURANTOIN
     Dosage: 100 MILLIGRAM FOR EVERY 1 DAYS
     Dates: start: 20170628
  13. TRIMETHOPRIM. [Concomitant]
     Active Substance: TRIMETHOPRIM
     Dosage: 400 MILLIGRAM FOR EVERY 1 DAYS
     Dates: start: 20170815

REACTIONS (2)
  - Abdominal pain [Unknown]
  - Vision blurred [Recovered/Resolved]
